FAERS Safety Report 4808307-0 (Version None)
Quarter: 2005Q4

REPORT INFORMATION
  Report Type: 
  Country: None (occurrence: None)
  Receive Date: 20051021
  Receipt Date: 20050615
  Transmission Date: 20060501
  Serious: No
  Sender: FDA-Public Use
  Company Number: JP_050606859

PATIENT
  Age: 42 Year
  Sex: Female

DRUGS (2)
  1. ZYPREXA [Suspect]
     Indication: SCHIZOPHRENIA
     Dosage: 15 MG/1 DAY
     Dates: start: 20050310, end: 20050608
  2. HALCION [Concomitant]

REACTIONS (2)
  - HYPERPROLACTINAEMIA [None]
  - MENSTRUATION IRREGULAR [None]
